FAERS Safety Report 8680160 (Version 2)
Quarter: 2012Q4

REPORT INFORMATION
  Report Type: Report from Study
  Country: US (occurrence: US)
  Receive Date: 20120724
  Receipt Date: 20121126
  Transmission Date: 20130627
  Serious: Yes (Other)
  Sender: FDA-Public Use
  Company Number: US-ROCHE-1090689

PATIENT
  Age: 42 Year
  Sex: Male
  Weight: 111 kg

DRUGS (8)
  1. RITUXIMAB [Suspect]
     Indication: B-CELL LYMPHOMA
     Route: 042
     Dates: start: 20110606, end: 20110606
  2. YM-155 [Suspect]
     Indication: LYMPHOMA
     Route: 042
     Dates: start: 20110606
  3. OXYCODONE/APAP [Concomitant]
     Route: 065
     Dates: start: 20110603
  4. ONDANSETRON [Concomitant]
     Route: 065
     Dates: start: 20120103, end: 20120401
  5. VALTREX [Concomitant]
     Route: 065
     Dates: start: 20111128, end: 20120130
  6. FLUCONAZOLE [Concomitant]
     Route: 065
     Dates: start: 20111114, end: 20120130
  7. NEUPOGEN [Concomitant]
     Dosage: 3000/0.5 UG/ML
     Route: 065
     Dates: start: 20111212, end: 20120130
  8. PERCOCET [Concomitant]

REACTIONS (6)
  - Myositis [Recovered/Resolved]
  - Myalgia [Recovered/Resolved]
  - Oedema peripheral [Recovered/Resolved]
  - Rash generalised [Recovered/Resolved]
  - Headache [Recovered/Resolved]
  - Rash papular [None]
